FAERS Safety Report 8984201 (Version 1)
Quarter: 2012Q4

REPORT INFORMATION
  Report Type: 
  Country: US (occurrence: US)
  Receive Date: 20121226
  Receipt Date: 20121226
  Transmission Date: 20130627
  Serious: No
  Sender: FDA-Public Use
  Company Number: US-BAYER-2012-134897

PATIENT
  Age: 92 Year
  Sex: Female
  Weight: 153 kg

DRUGS (5)
  1. ALEVE CAPLET/TABLET,MIDOL EXTENDED RELIEF CAPLET [Suspect]
     Indication: ARTHRITIS
     Dosage: 2 DF, UNK
     Route: 048
     Dates: start: 20121213
  2. ALEVE CAPLET/TABLET,MIDOL EXTENDED RELIEF CAPLET [Suspect]
     Indication: ARTHRITIS
     Dosage: 1, UNK
     Dates: start: 20121214
  3. METOPROLOL TARTRATE [Concomitant]
  4. LEVOTHYROXINE [Concomitant]
  5. NEXIUM [Concomitant]

REACTIONS (2)
  - Drug ineffective [None]
  - Drug ineffective [None]
